FAERS Safety Report 6180232-5 (Version None)
Quarter: 2009Q2

REPORT INFORMATION
  Report Type: 
  Country: None (occurrence: None)
  Receive Date: 20090504
  Receipt Date: 20090423
  Transmission Date: 20091009
  Serious: Yes (Hospitalization)
  Sender: FDA-Public Use
  Company Number: 2009US001240

PATIENT
  Age: 53 Year
  Sex: Male
  Weight: 176 kg

DRUGS (6)
  1. LEXISCAN [Suspect]
     Indication: SCAN MYOCARDIAL PERFUSION
     Dosage: 0.4 MG, TOTAL DOSE, IV BOLUS
     Route: 040
     Dates: start: 20090415, end: 20090415
  2. COUMADIN [Concomitant]
  3. COREG [Concomitant]
  4. PREVACID [Concomitant]
  5. AMBIEN [Concomitant]
  6. NOVOLOG [Concomitant]

REACTIONS (2)
  - LACUNAR INFARCTION [None]
  - NAUSEA [None]
